FAERS Safety Report 5139478-7 (Version None)
Quarter: 2006Q4

REPORT INFORMATION
  Report Type: 
  Country: None (occurrence: None)
  Receive Date: 20061026
  Receipt Date: 20061026
  Transmission Date: 20070319
  Serious: Yes (Hospitalization)
  Sender: FDA-Public Use
  Company Number: None

PATIENT
  Sex: Male
  Weight: 96 kg

DRUGS (1)
  1. BEVACIZUMAB [Suspect]
     Indication: CAROTID ARTERY DISEASE
     Dosage: 956MG
     Dates: start: 20060919

REACTIONS (1)
  - EPISTAXIS [None]
